FAERS Safety Report 21693537 (Version 1)
Quarter: 2022Q4

REPORT INFORMATION
  Report Type: Report from Study
  Country: NL (occurrence: NL)
  Receive Date: 20221207
  Receipt Date: 20221207
  Transmission Date: 20230112
  Serious: Yes (Other)
  Sender: FDA-Public Use
  Company Number: NL-MYLANLABS-2022M1136418

PATIENT
  Age: 65 Year
  Sex: Male

DRUGS (7)
  1. CAPECITABINE [Suspect]
     Active Substance: CAPECITABINE
     Indication: Colorectal cancer metastatic
     Dosage: 1000 MILLIGRAM/SQ. METER, CYCLE (CAPECITABINE 1000 MG/M2 B.I.D. DAYS 1 TO 14....
     Route: 048
  2. CAPECITABINE [Suspect]
     Active Substance: CAPECITABINE
     Dosage: DOSE REDUCED TO 50%
     Route: 048
  3. OXALIPLATIN [Suspect]
     Active Substance: OXALIPLATIN
     Indication: Colorectal cancer metastatic
     Dosage: 130 MILLIGRAM/SQ. METER, CYCLE (OXALIPLATIN 130 MG/M2 ON DAY 1 IN 3-WEEKLY CYCLES)
     Route: 042
  4. FLUOROURACIL [Concomitant]
     Active Substance: FLUOROURACIL
     Indication: Colorectal cancer metastatic
     Dosage: 2400 MILLIGRAM/SQ. METER, CYCLE (FLUOROURACIL 2400 MG/M2 ON DAYS 1 TO 2 EVERY....
     Route: 065
  5. LEUCOVORIN [Concomitant]
     Active Substance: LEUCOVORIN
     Indication: Colorectal cancer metastatic
     Dosage: 400 MILLIGRAM/SQ. METER, CYCLE (FOLINIC ACID 400 MG/M2 ON DAY 1 EVERY 2 WEEKS)
     Route: 065
  6. IRINOTECAN [Concomitant]
     Active Substance: IRINOTECAN
     Indication: Colorectal cancer metastatic
     Dosage: 180 MILLIGRAM/SQ. METER, CYCLE (IRINOTECAN 180 MG/M2 DAY 1 EVERY 2 WEEKS)
     Route: 065
  7. BEVACIZUMAB [Concomitant]
     Active Substance: BEVACIZUMAB
     Indication: Colorectal cancer metastatic
     Dosage: 5 MILLIGRAM/KILOGRAM, CYCLE (BEVACIZUMAB 5 MG/KG ON DAY 1 EVERY 2 WEEKS)
     Route: 065

REACTIONS (4)
  - Diarrhoea [Unknown]
  - Mucosal inflammation [Unknown]
  - Gastrointestinal toxicity [Unknown]
  - Drug ineffective [Unknown]
